FAERS Safety Report 9401279 (Version 2)
Quarter: 2013Q3

REPORT INFORMATION
  Report Type: Report from Study
  Country: US (occurrence: US)
  Receive Date: 20130715
  Receipt Date: 20130820
  Transmission Date: 20140515
  Serious: Yes (Life-Threatening, Hospitalization)
  Sender: FDA-Public Use
  Company Number: US-US-EMD SERONO, INC.-7223880

PATIENT
  Age: 4 Year
  Sex: Female
  Weight: 15 kg

DRUGS (8)
  1. SAIZEN [(SOMATROPIN (RDNA ORIGIN) FOR INJECTION)] [Suspect]
     Indication: GROWTH HORMONE DEFICIENCY
     Route: 058
     Dates: start: 20090709
  2. SYNTHROID [Concomitant]
     Indication: HYPOTHYROIDISM
  3. HYDROCORTISONE [Concomitant]
     Indication: BLOOD CORTISOL DECREASED
  4. ASCORBIC ACID [Concomitant]
     Indication: PRODUCT USED FOR UNKNOWN INDICATION
  5. RANITIDINE [Concomitant]
     Indication: PRODUCT USED FOR UNKNOWN INDICATION
  6. CARNITINE [Concomitant]
     Indication: PRODUCT USED FOR UNKNOWN INDICATION
  7. RIBOFLAVIN [Concomitant]
     Indication: PRODUCT USED FOR UNKNOWN INDICATION
  8. UBIQUINON [Concomitant]
     Indication: PRODUCT USED FOR UNKNOWN INDICATION

REACTIONS (5)
  - Acute respiratory distress syndrome [Recovering/Resolving]
  - Pneumonia [Recovering/Resolving]
  - Shock [Recovering/Resolving]
  - Infection [Unknown]
  - Gait disturbance [Not Recovered/Not Resolved]
